FAERS Safety Report 8142690-6 (Version None)
Quarter: 2012Q1

REPORT INFORMATION
  Report Type: 
  Country: None (occurrence: None)
  Receive Date: 20120216
  Receipt Date: 20120207
  Transmission Date: 20120608
  Serious: Yes (Hospitalization)
  Sender: FDA-Public Use
  Company Number: US-OPTIMER-20120019

PATIENT

DRUGS (2)
  1. DIFICID [Suspect]
     Indication: CLOSTRIDIUM DIFFICILE COLITIS
     Dosage: 200 MG, BID
     Route: 048
  2. DIFICID [Suspect]
     Indication: CLOSTRIDIAL INFECTION
     Dosage: UNK
     Route: 065
     Dates: start: 20110101, end: 20110101

REACTIONS (5)
  - DRUG INEFFECTIVE [None]
  - DIARRHOEA [None]
  - CLOSTRIDIUM DIFFICILE COLITIS [None]
  - WHITE BLOOD CELL COUNT INCREASED [None]
  - HAEMORRHAGE INTRACRANIAL [None]
